FAERS Safety Report 8722750 (Version 2)
Quarter: 2013Q2

REPORT INFORMATION
  Report Type: Spontaneous
  Country: US (occurrence: US)
  Receive Date: 20120814
  Receipt Date: 20130415
  Transmission Date: 20140414
  Serious: Yes (Other)
  Sender: FDA-Public Use
  Company Number: US-ASTRAZENECA-2010SE53871

PATIENT
  Age: 71 Year
  Sex: Female

DRUGS (9)
  1. NEXIUM [Suspect]
     Indication: GASTRITIS
     Route: 048
  2. NEXIUM [Suspect]
     Indication: ABDOMINAL PAIN UPPER
     Route: 048
  3. NEXIUM [Suspect]
     Indication: DUODENITIS
     Route: 048
  4. NEXIUM [Suspect]
     Indication: GASTRITIS
     Route: 048
  5. NEXIUM [Suspect]
     Indication: ABDOMINAL PAIN UPPER
     Route: 048
  6. NEXIUM [Suspect]
     Indication: DUODENITIS
     Route: 048
  7. ALEVE [Concomitant]
  8. GENERIC FOSAMAX [Concomitant]
  9. METHOTREXATE [Concomitant]

REACTIONS (6)
  - Gastric ulcer [Unknown]
  - Multiple allergies [Unknown]
  - Increased upper airway secretion [Unknown]
  - Sinus disorder [Unknown]
  - Nasal congestion [Unknown]
  - Throat irritation [Unknown]
